FAERS Safety Report 8888738 (Version 1)
Quarter: 2012Q4

REPORT INFORMATION
  Report Type: 
  Country: US (occurrence: US)
  Receive Date: 20121106
  Receipt Date: 20121106
  Transmission Date: 20130627
  Serious: No
  Sender: FDA-Public Use
  Company Number: US-PFIZER INC-2012274232

PATIENT
  Age: 12 Year
  Sex: Female
  Weight: 34.92 kg

DRUGS (1)
  1. CHILDRENS ADVIL [Suspect]
     Indication: FEVER
     Dosage: two to three teaspoons as needed
     Dates: end: 20121101

REACTIONS (5)
  - Hypersensitivity [Not Recovered/Not Resolved]
  - Food allergy [Not Recovered/Not Resolved]
  - Abdominal distension [Not Recovered/Not Resolved]
  - Abdominal pain upper [Not Recovered/Not Resolved]
  - Product label issue [Not Recovered/Not Resolved]
